FAERS Safety Report 9621332 (Version 2)
Quarter: 2013Q4

REPORT INFORMATION
  Report Type: Report from Study
  Country: US (occurrence: US)
  Receive Date: 20131015
  Receipt Date: 20131015
  Transmission Date: 20140711
  Serious: Yes (Hospitalization)
  Sender: FDA-Public Use
  Company Number: PHEH2013US011830

PATIENT
  Sex: Female
  Weight: 63.39 kg

DRUGS (9)
  1. AFINITOR [Suspect]
     Indication: BREAST CANCER
     Route: 048
     Dates: start: 20130416
  2. AFINITOR [Suspect]
     Dosage: 7.5 MG
     Route: 048
  3. EXEMESTANE [Concomitant]
     Dosage: 25 MG
     Route: 048
     Dates: start: 20100406
  4. LAPATINIB [Concomitant]
     Dosage: 250 MG
     Route: 048
  5. LASIX [Concomitant]
     Dosage: 20 MG
     Route: 048
  6. MARINOL [Concomitant]
     Dosage: 2.5 MG
     Route: 048
  7. ONDANSETRON [Concomitant]
     Dosage: 8 MG
     Route: 048
  8. PROCHLORPERAZINE MALEATE [Concomitant]
     Dosage: 10 MG
     Route: 048
  9. XELODA [Concomitant]
     Dosage: 500 MG
     Route: 048

REACTIONS (5)
  - Abdominal hernia [Unknown]
  - Abdominal pain upper [Unknown]
  - Platelet count decreased [Unknown]
  - Epistaxis [Unknown]
  - Feeling hot [Unknown]
